FAERS Safety Report 24237413 (Version 1)
Quarter: 2024Q3

REPORT INFORMATION
  Report Type: Spontaneous
  Country: IT (occurrence: IT)
  Receive Date: 20240822
  Receipt Date: 20240822
  Transmission Date: 20241017
  Serious: Yes (Other)
  Sender: AMGEN
  Company Number: None

PATIENT
  Age: 21 Year
  Sex: Male
  Weight: 72 kg

DRUGS (1)
  1. BLINATUMOMAB [Suspect]
     Active Substance: BLINATUMOMAB
     Indication: Acute lymphocytic leukaemia
     Dosage: FROM 3/JUN/24 TO 4/JUN/24: 9 MCG/M2/DAY FROM 5/JUN/24 TO 7/JUN/24: STOP FROM 8/JUN/24 TO 14/JUN/24:
     Route: 040
     Dates: start: 20240603, end: 20240704

REACTIONS (3)
  - Altered state of consciousness [Recovered/Resolved]
  - Asthenia [Recovered/Resolved]
  - Dyspraxia [Recovered/Resolved]

NARRATIVE: CASE EVENT DATE: 20240605
